FAERS Safety Report 4565905-X (Version None)
Quarter: 2005Q1

REPORT INFORMATION
  Report Type: 
  Country: None (occurrence: None)
  Receive Date: 20050131
  Receipt Date: 20050119
  Transmission Date: 20050727
  Serious: Yes (Other)
  Sender: FDA-Public Use
  Company Number: GBWYE354819JAN05

PATIENT
  Sex: Female

DRUGS (4)
  1. ENBREL [Suspect]
     Indication: DRUG USE FOR UNKNOWN INDICATION
     Dosage: UNKNOWN
     Dates: start: 20040801
  2. SULFASALAZINE [Concomitant]
     Dosage: UNKNOWN
     Dates: end: 20041201
  3. METHOTREXATE [Concomitant]
  4. WARFARIN SODIUM [Concomitant]

REACTIONS (2)
  - HIP SURGERY [None]
  - PERIPHERAL EMBOLISM [None]
